FAERS Safety Report 11697465 (Version 5)
Quarter: 2016Q1

REPORT INFORMATION
  Report Type: Spontaneous
  Country: US (occurrence: US)
  Receive Date: 20151104
  Receipt Date: 20160211
  Transmission Date: 20160525
  Serious: Yes (Other)
  Sender: FDA-Public Use
  Company Number: US-PFIZER INC-2015360604

PATIENT
  Age: 52 Year
  Sex: Male
  Weight: 95 kg

DRUGS (1)
  1. DILANTIN [Suspect]
     Active Substance: PHENYTOIN
     Dosage: UNK

REACTIONS (8)
  - Rash [Unknown]
  - Loss of consciousness [Unknown]
  - Drug intolerance [Unknown]
  - Seizure [Unknown]
  - Toxicity to various agents [Unknown]
  - Depression [Unknown]
  - Amnesia [Unknown]
  - Feeling abnormal [Unknown]
